FAERS Safety Report 7704289-2 (Version None)
Quarter: 2011Q3

REPORT INFORMATION
  Report Type: 
  Country: None (occurrence: None)
  Receive Date: 20110823
  Receipt Date: 20110812
  Transmission Date: 20111222
  Serious: Yes (Other)
  Sender: FDA-Public Use
  Company Number: PHHY2011DK70115

PATIENT
  Sex: Female
  Weight: 3.19 kg

DRUGS (1)
  1. RITALIN [Suspect]
     Route: 065

REACTIONS (2)
  - RESPIRATORY DISTRESS [None]
  - MATERNAL EXPOSURE DURING PREGNANCY [None]
